FAERS Safety Report 5351872-8 (Version None)
Quarter: 2007Q2

REPORT INFORMATION
  Report Type: 
  Country: None (occurrence: None)
  Receive Date: 20070609
  Receipt Date: 20070604
  Transmission Date: 20071010
  Serious: Yes (Death)
  Sender: FDA-Public Use
  Company Number: CA-ABBOTT-07P-028-0370432-00

PATIENT
  Age: 69 Year
  Sex: Male

DRUGS (1)
  1. HYDROMORPHONE HCL [Suspect]
     Indication: PAIN
     Route: 030

REACTIONS (2)
  - CARDIO-RESPIRATORY ARREST [None]
  - MEDICATION ERROR [None]
